FAERS Safety Report 7456128-5 (Version None)
Quarter: 2011Q2

REPORT INFORMATION
  Report Type: 
  Country: None (occurrence: None)
  Receive Date: 20110503
  Receipt Date: 20110420
  Transmission Date: 20111010
  Serious: Yes (Hospitalization, Other)
  Sender: FDA-Public Use
  Company Number: PHHY2011FR34380

PATIENT
  Sex: Male

DRUGS (3)
  1. DALACINE [Suspect]
     Indication: OSTEOMYELITIS
  2. TASIGNA [Suspect]
     Dosage: 400 MG, BID
     Route: 048
  3. FUCIDINE CAP [Suspect]
     Indication: OSTEOMYELITIS

REACTIONS (6)
  - SINUS BRADYCARDIA [None]
  - SKIN ULCER [None]
  - BLOOD POTASSIUM INCREASED [None]
  - STAPHYLOCOCCAL OSTEOMYELITIS [None]
  - RENAL FAILURE ACUTE [None]
  - BLOOD CREATININE INCREASED [None]
